APPROVED DRUG PRODUCT: PHENTERMINE HYDROCHLORIDE
Active Ingredient: PHENTERMINE HYDROCHLORIDE
Strength: 37.5MG
Dosage Form/Route: CAPSULE;ORAL
Application: A087918 | Product #001
Applicant: CHARTWELL RX SCIENCES LLC
Approved: Dec 22, 1983 | RLD: No | RS: No | Type: DISCN